FAERS Safety Report 23980637 (Version 2)
Quarter: 2024Q3

REPORT INFORMATION
  Report Type: Spontaneous
  Country: US (occurrence: US)
  Receive Date: 20240617
  Receipt Date: 20240703
  Transmission Date: 20241016
  Serious: Yes (Other)
  Sender: TAKEDA
  Company Number: US-TAKEDA-2024TUS057850

PATIENT
  Sex: Female
  Weight: 97 kg

DRUGS (5)
  1. ENTYVIO [Suspect]
     Active Substance: VEDOLIZUMAB
     Indication: Colitis ulcerative
     Dosage: 300 MILLIGRAM
     Route: 042
     Dates: start: 20240521
  2. TESTOSTERONE [Concomitant]
     Active Substance: TESTOSTERONE
     Indication: Transgender hormonal therapy
     Dosage: 200 MILLIGRAM
     Route: 030
  3. BUDESONIDE [Concomitant]
     Active Substance: BUDESONIDE
     Dosage: 3 MILLIGRAM, QD
     Route: 048
  4. METRONIDAZOLE [Concomitant]
     Active Substance: METRONIDAZOLE
     Dosage: 500 MILLIGRAM, TID
     Route: 048
  5. CIPROFLOXACIN HYDROCHLORIDE [Concomitant]
     Active Substance: CIPROFLOXACIN HYDROCHLORIDE
     Dosage: 500 MILLIGRAM, BID

REACTIONS (6)
  - Chest discomfort [Unknown]
  - Cough [Unknown]
  - Dysphagia [Unknown]
  - Cold sweat [Unknown]
  - Pallor [Unknown]
  - Throat tightness [Unknown]
